FAERS Safety Report 13687144 (Version 2)
Quarter: 2017Q3

REPORT INFORMATION
  Report Type: Spontaneous
  Country: US (occurrence: US)
  Receive Date: 20170623
  Receipt Date: 20170703
  Transmission Date: 20171127
  Serious: Yes (Life-Threatening, Hospitalization, Other)
  Sender: FDA-Public Use
  Company Number: US-SA-2017SA107062

PATIENT
  Age: 52 Year
  Sex: Female

DRUGS (10)
  1. GEMCITABINE [Suspect]
     Active Substance: GEMCITABINE\GEMCITABINE HYDROCHLORIDE
     Indication: CHOLANGIOCARCINOMA
     Route: 065
  2. GEMCITABINE [Suspect]
     Active Substance: GEMCITABINE\GEMCITABINE HYDROCHLORIDE
     Indication: CHOLANGIOCARCINOMA
     Route: 065
  3. CISPLATIN. [Suspect]
     Active Substance: CISPLATIN
     Indication: METASTASES TO LUNG
     Route: 065
  4. CISPLATIN. [Suspect]
     Active Substance: CISPLATIN
     Indication: METASTASES TO LUNG
     Route: 065
  5. GEMCITABINE [Suspect]
     Active Substance: GEMCITABINE\GEMCITABINE HYDROCHLORIDE
     Indication: METASTASES TO LUNG
     Route: 065
  6. DUONEB [Concomitant]
     Active Substance: ALBUTEROL SULFATE\IPRATROPIUM BROMIDE
     Route: 065
  7. CISPLATIN. [Suspect]
     Active Substance: CISPLATIN
     Indication: CHOLANGIOCARCINOMA
     Route: 065
  8. CISPLATIN. [Suspect]
     Active Substance: CISPLATIN
     Indication: CHOLANGIOCARCINOMA
     Route: 065
  9. ENOXAPARIN SODIUM. [Suspect]
     Active Substance: ENOXAPARIN SODIUM
     Indication: THROMBOSIS PROPHYLAXIS
     Route: 058
  10. GEMCITABINE [Suspect]
     Active Substance: GEMCITABINE\GEMCITABINE HYDROCHLORIDE
     Indication: METASTASES TO LUNG
     Route: 065

REACTIONS (15)
  - Left ventricular dysfunction [Unknown]
  - Agitation [Not Recovered/Not Resolved]
  - Drug ineffective [Unknown]
  - Cerebral infarction [Not Recovered/Not Resolved]
  - Sensory disturbance [Not Recovered/Not Resolved]
  - Ventricular hypokinesia [Unknown]
  - Hemiparesis [Not Recovered/Not Resolved]
  - Thrombocytopenia [Unknown]
  - Embolism venous [Unknown]
  - Mental status changes [Not Recovered/Not Resolved]
  - Pulmonary embolism [Unknown]
  - Ejection fraction decreased [Unknown]
  - Ischaemic stroke [Not Recovered/Not Resolved]
  - Dysarthria [Not Recovered/Not Resolved]
  - Pancytopenia [Unknown]
